FAERS Safety Report 17488013 (Version 1)
Quarter: 2020Q1

REPORT INFORMATION
  Report Type: Spontaneous
  Country: CH (occurrence: CH)
  Receive Date: 20200303
  Receipt Date: 20200303
  Transmission Date: 20200409
  Serious: Yes (Other)
  Sender: FDA-Public Use
  Company Number: NVSC2020CH056964

PATIENT
  Sex: Female

DRUGS (8)
  1. TAMOXIFEN [Suspect]
     Active Substance: TAMOXIFEN
     Indication: BREAST CANCER METASTATIC
     Dosage: UNK UKN
     Route: 065
  2. NAVELBINE [Suspect]
     Active Substance: VINORELBINE TARTRATE
     Indication: BREAST CANCER METASTATIC
     Dosage: UNK UKN
     Route: 065
     Dates: start: 201909
  3. XELODA [Suspect]
     Active Substance: CAPECITABINE
     Indication: BREAST CANCER METASTATIC
     Dosage: UNK UKN
     Route: 065
     Dates: start: 201909
  4. FASLODEX [Suspect]
     Active Substance: FULVESTRANT
     Indication: BREAST CANCER METASTATIC
     Dosage: UNK UKN
     Route: 065
  5. PALBOCICLIB [Suspect]
     Active Substance: PALBOCICLIB
     Indication: BREAST CANCER METASTATIC
     Dosage: UNK UKN
     Route: 065
     Dates: start: 201903
  6. TAXOL [Suspect]
     Active Substance: PACLITAXEL
     Indication: BREAST CANCER METASTATIC
     Dosage: UNK UKN, QW
     Route: 065
     Dates: start: 202002
  7. EVEROLIMUS. [Suspect]
     Active Substance: EVEROLIMUS
     Indication: BREAST CANCER METASTATIC
     Dosage: UNK UKN
     Route: 065
  8. BAZEDOXIFENE [Suspect]
     Active Substance: BAZEDOXIFENE
     Indication: BREAST CANCER METASTATIC
     Dosage: UNK UKN
     Route: 065

REACTIONS (7)
  - Arthralgia [Unknown]
  - Glucose tolerance impaired [Unknown]
  - Drug resistance [Unknown]
  - Colitis [Unknown]
  - Drug intolerance [Unknown]
  - Mucosal inflammation [Unknown]
  - Toxicity to various agents [Unknown]
